FAERS Safety Report 6768957-1 (Version None)
Quarter: 2010Q2

REPORT INFORMATION
  Report Type: 
  Country: None (occurrence: None)
  Receive Date: 20100615
  Receipt Date: 20100607
  Transmission Date: 20101027
  Serious: Yes (Hospitalization)
  Sender: FDA-Public Use
  Company Number: US-BIOGENIDEC-2010BI015964

PATIENT
  Age: 60 Year
  Sex: Female

DRUGS (1)
  1. AVONEX [Suspect]
     Indication: MULTIPLE SCLEROSIS
     Route: 030
     Dates: start: 19960701

REACTIONS (6)
  - ABASIA [None]
  - FALL [None]
  - FEMUR FRACTURE [None]
  - FIBULA FRACTURE [None]
  - TIBIA FRACTURE [None]
  - URINARY TRACT INFECTION [None]
